FAERS Safety Report 5291401-0 (Version None)
Quarter: 2007Q2

REPORT INFORMATION
  Report Type: 
  Country: None (occurrence: None)
  Receive Date: 20070402
  Receipt Date: 20070316
  Transmission Date: 20071010
  Serious: Yes (Disabling)
  Sender: FDA-Public Use
  Company Number: 07-000637

PATIENT
  Age: 51 Year
  Sex: Male

DRUGS (1)
  1. DOVONEX [Suspect]
     Indication: PSORIASIS
     Dosage: TOPICAL
     Route: 061

REACTIONS (3)
  - BLISTER [None]
  - DISCOMFORT [None]
  - FEELING HOT [None]
